FAERS Safety Report 6054269-0 (Version None)
Quarter: 2009Q1

REPORT INFORMATION
  Report Type: 
  Country: None (occurrence: None)
  Receive Date: 20090127
  Receipt Date: 20081125
  Transmission Date: 20090719
  Serious: No
  Sender: FDA-Public Use
  Company Number: US-AMGEN-US320836

PATIENT
  Sex: Male

DRUGS (10)
  1. VECTIBIX [Suspect]
     Indication: COLORECTAL CANCER
     Route: 042
     Dates: start: 20080930
  2. COUMADIN [Concomitant]
     Route: 065
  3. NEXIUM [Concomitant]
     Route: 065
  4. LOMOTIL [Concomitant]
     Route: 065
  5. LISINOPRIL AND HYDROCHLOROTHIAZIDE [Concomitant]
     Route: 065
  6. ANTIDEPRESSANTS [Concomitant]
     Route: 065
     Dates: start: 20080810
  7. IMODIUM [Concomitant]
     Route: 065
  8. MINOCYCLINE HCL [Concomitant]
     Route: 065
     Dates: start: 20081008
  9. CLEOCIN [Concomitant]
     Route: 061
     Dates: start: 20081008
  10. ARANESP [Concomitant]
     Route: 065
     Dates: start: 20080930

REACTIONS (4)
  - AGITATION [None]
  - ANXIETY [None]
  - ORAL PRURITUS [None]
  - RESTLESS LEGS SYNDROME [None]
